FAERS Safety Report 22248557 (Version 2)
Quarter: 2023Q2

REPORT INFORMATION
  Report Type: Other
  Country: US (occurrence: None)
  Receive Date: 20230425
  Receipt Date: 20230426
  Transmission Date: 20230722
  Serious: No
  Sender: FDA-Public Use
  Company Number: US-ROCHE-3336753

PATIENT
  Age: 46 Year
  Sex: Female

DRUGS (19)
  1. OCREVUS [Suspect]
     Active Substance: OCRELIZUMAB
     Indication: Relapsing multiple sclerosis
     Dosage: YES
     Route: 042
  2. TIZANIDINE [Concomitant]
     Active Substance: TIZANIDINE
  3. OXYBUTYNIN [Concomitant]
     Active Substance: OXYBUTYNIN
  4. BACLOFEN [Concomitant]
     Active Substance: BACLOFEN
  5. PHENTERMINE [Concomitant]
     Active Substance: PHENTERMINE
  6. MELATONIN [Concomitant]
     Active Substance: MELATONIN
  7. VALTREX [Concomitant]
     Active Substance: VALACYCLOVIR HYDROCHLORIDE
  8. BUPROPION [Concomitant]
     Active Substance: BUPROPION
  9. CYMBALTA [Concomitant]
     Active Substance: DULOXETINE HYDROCHLORIDE
  10. METHENAMINE MANDELATE [Concomitant]
     Active Substance: METHENAMINE MANDELATE
  11. ALLEGRA [Concomitant]
     Active Substance: FEXOFENADINE HYDROCHLORIDE
  12. AMANTADINE [Concomitant]
     Active Substance: AMANTADINE
  13. ERGOCALCIFEROL [Concomitant]
     Active Substance: ERGOCALCIFEROL
  14. ESTRADIOL [Concomitant]
     Active Substance: ESTRADIOL
  15. TAMSULOSIN [Concomitant]
     Active Substance: TAMSULOSIN
  16. CRANBERRY [Concomitant]
     Active Substance: CRANBERRY
  17. VITAMIN C [Concomitant]
     Active Substance: ASCORBIC ACID
  18. HYDROXYZINE [Concomitant]
     Active Substance: HYDROXYZINE HYDROCHLORIDE
  19. VITAMIN B12 [Concomitant]
     Active Substance: CYANOCOBALAMIN

REACTIONS (1)
  - Fungal infection [Unknown]
